FAERS Safety Report 6458754-9 (Version None)
Quarter: 2009Q4

REPORT INFORMATION
  Report Type: 
  Country: None (occurrence: None)
  Receive Date: 20091127
  Receipt Date: 20091119
  Transmission Date: 20100525
  Serious: Yes (Hospitalization)
  Sender: FDA-Public Use
  Company Number: CN-ROCHE-670026

PATIENT
  Sex: Male
  Weight: 65 kg

DRUGS (6)
  1. MYCOPHENOLATE MOFETIL [Suspect]
     Route: 048
     Dates: start: 20060101
  2. MYCOPHENOLATE MOFETIL [Suspect]
     Route: 048
     Dates: start: 20081110
  3. MYCOPHENOLATE MOFETIL [Suspect]
     Dosage: DOSE REDUCED.
     Route: 048
     Dates: start: 20090303
  4. MYCOPHENOLATE MOFETIL [Suspect]
     Route: 048
  5. CYCLOSPORINE [Suspect]
     Route: 048
     Dates: start: 20060101
  6. CYCLOSPORINE [Suspect]
     Dosage: DOSE REDUCED.
     Route: 048
     Dates: start: 20081110

REACTIONS (1)
  - TRANSPLANT REJECTION [None]
